FAERS Safety Report 9929291 (Version 1)
Quarter: 2014Q1

REPORT INFORMATION
  Report Type: Spontaneous
  Country: US (occurrence: None)
  Receive Date: 20140109
  Receipt Date: 20140109
  Transmission Date: 20141002
  Serious: Yes (Life-Threatening)
  Sender: FDA-Public Use
  Company Number: 371252

PATIENT
  Sex: 0

DRUGS (1)
  1. INSULIN DETEMIR [Suspect]
     Route: 058

REACTIONS (1)
  - Blood glucose decreased [None]
